FAERS Safety Report 20417045 (Version 7)
Quarter: 2024Q2

REPORT INFORMATION
  Report Type: Spontaneous
  Country: US (occurrence: US)
  Receive Date: 20220202
  Receipt Date: 20240417
  Transmission Date: 20240716
  Serious: Yes (Other)
  Sender: FDA-Public Use
  Company Number: US-PFIZER INC-202101541009

PATIENT
  Age: 56 Year
  Sex: Female

DRUGS (1)
  1. XELJANZ XR [Suspect]
     Active Substance: TOFACITINIB CITRATE
     Dosage: TAKE 1 TABLET BY MOUTH ONCE DAILY
     Route: 048

REACTIONS (6)
  - Diabetes mellitus [Unknown]
  - Product dose omission issue [Unknown]
  - Tooth disorder [Unknown]
  - Pain [Not Recovered/Not Resolved]
  - Dysstasia [Unknown]
  - Mobility decreased [Unknown]
